FAERS Safety Report 23689786 (Version 1)
Quarter: 2024Q1

REPORT INFORMATION
  Report Type: Spontaneous
  Country: US (occurrence: US)
  Receive Date: 20240331
  Receipt Date: 20240331
  Transmission Date: 20240410
  Serious: No
  Sender: FDA-Public Use
  Company Number: US-BIOGEN-2024BI01249416

PATIENT
  Sex: Male

DRUGS (1)
  1. SKYCLARYS [Suspect]
     Active Substance: OMAVELOXOLONE
     Indication: Friedreich^s ataxia
     Dosage: 150MG BY MOUTH ONCE DAILY
     Route: 050
     Dates: start: 20230703

REACTIONS (5)
  - Depression [Unknown]
  - Blood pressure increased [Unknown]
  - Heart rate increased [Unknown]
  - Oxygen saturation increased [Unknown]
  - Stress [Unknown]
